FAERS Safety Report 17966817 (Version 4)
Quarter: 2020Q4

REPORT INFORMATION
  Report Type: Report from Study
  Country: None (occurrence: GB)
  Receive Date: 20200630
  Receipt Date: 20201028
  Transmission Date: 20210113
  Serious: Yes (Hospitalization, Other)
  Sender: FDA-Public Use
  Company Number: GB-ABBVIE-20K-167-3464725-00

PATIENT
  Sex: Male

DRUGS (2)
  1. DUODOPA [Suspect]
     Active Substance: CARBIDOPA\LEVODOPA
     Indication: PARKINSON^S DISEASE
     Dosage: 100ML CASSETTE DAILY?5MG/1ML?20MG/1ML?AS DIRECTED
     Route: 050
  2. DUODOPA [Suspect]
     Active Substance: CARBIDOPA\LEVODOPA
     Dosage: 100ML CASSETTE DAILY?5MG/1ML?20MG/1ML?AS DIRECTED
     Route: 050

REACTIONS (10)
  - Balance disorder [Unknown]
  - Unevaluable event [Unknown]
  - Device breakage [Unknown]
  - Brain neoplasm [Unknown]
  - Diplopia [Unknown]
  - Device issue [Not Recovered/Not Resolved]
  - Acoustic neuroma [Unknown]
  - Brain oedema [Unknown]
  - Fall [Unknown]
  - Nervous system cyst [Unknown]
